FAERS Safety Report 13453484 (Version 1)
Quarter: 2017Q2

REPORT INFORMATION
  Report Type: Spontaneous
  Country: US (occurrence: US)
  Receive Date: 20170418
  Receipt Date: 20170418
  Transmission Date: 20170830
  Serious: No
  Sender: FDA-Public Use
  Company Number: US-ALLERGAN-1665165US

PATIENT
  Sex: Female
  Weight: 61.22 kg

DRUGS (2)
  1. LATISSE [Suspect]
     Active Substance: BIMATOPROST
     Dosage: 2 GTT, QD
     Route: 061
     Dates: start: 201505, end: 201505
  2. LATISSE [Suspect]
     Active Substance: BIMATOPROST
     Indication: GROWTH OF EYELASHES
     Dosage: 2 GTT, QD
     Route: 061
     Dates: start: 20160316, end: 20160330

REACTIONS (4)
  - Hypersensitivity [Unknown]
  - Eye irritation [Unknown]
  - Eye pruritus [Unknown]
  - Lacrimation increased [Unknown]
